FAERS Safety Report 16593810 (Version 1)
Quarter: 2019Q3

REPORT INFORMATION
  Report Type: Spontaneous
  Country: PL (occurrence: PL)
  Receive Date: 20190718
  Receipt Date: 20190718
  Transmission Date: 20191004
  Serious: Yes (Other)
  Sender: FDA-Public Use
  Company Number: PL-GLAXOSMITHKLINE-PL2019126237

PATIENT
  Age: 25 Year
  Sex: Female

DRUGS (1)
  1. ZINNAT [Suspect]
     Active Substance: CEFUROXIME
     Indication: UPPER RESPIRATORY TRACT INFECTION
     Dosage: UNK
     Route: 065

REACTIONS (9)
  - Rash [Unknown]
  - Pyrexia [Unknown]
  - Pruritus [Unknown]
  - Hypoaesthesia oral [Unknown]
  - Oesophageal oedema [Unknown]
  - Dyspnoea [Unknown]
  - Malaise [Unknown]
  - Hypersensitivity [Unknown]
  - Swelling face [Unknown]
